FAERS Safety Report 9128554 (Version 1)
Quarter: 2013Q1

REPORT INFORMATION
  Report Type: Spontaneous
  Country: GB (occurrence: GB)
  Receive Date: 20130125
  Receipt Date: 20130125
  Transmission Date: 20140127
  Serious: Yes (Hospitalization, Other)
  Sender: FDA-Public Use
  Company Number: GB-ELI_LILLY_AND_COMPANY-GB201212008378

PATIENT
  Sex: Female
  Weight: 123.3 kg

DRUGS (3)
  1. BYETTA [Suspect]
     Indication: DIABETES MELLITUS
     Dosage: 5 UG, BID
     Route: 058
  2. BYETTA [Suspect]
     Dosage: 10 UG, BID
     Route: 058
  3. BYETTA [Suspect]
     Dosage: 5 U, BID
     Route: 058
     Dates: end: 201204

REACTIONS (2)
  - Cholelithiasis [Not Recovered/Not Resolved]
  - Gastrooesophageal reflux disease [Recovering/Resolving]
